FAERS Safety Report 9188469 (Version 1)
Quarter: 2012Q4

REPORT INFORMATION
  Report Type: 
  Country: US (occurrence: US)
  Receive Date: 20121205
  Receipt Date: 20121205
  Transmission Date: 20130627
  Serious: Yes (Other)
  Sender: FDA-Public Use
  Company Number: PHHY2012US110167

PATIENT
  Age: 27 Year
  Sex: Female

DRUGS (2)
  1. CICLOSPORIN [Suspect]
     Indication: PROPHYLAXIS AGAINST GRAFT VERSUS HOST DISEASE
  2. METHOTREXATE [Suspect]
     Indication: PROPHYLAXIS AGAINST GRAFT VERSUS HOST DISEASE

REACTIONS (3)
  - Thrombotic microangiopathy [Unknown]
  - Acute graft versus host disease in skin [Recovered/Resolved]
  - Acute graft versus host disease in intestine [Recovered/Resolved]
